FAERS Safety Report 12845371 (Version 1)
Quarter: 2016Q4

REPORT INFORMATION
  Report Type: Spontaneous
  Country: US (occurrence: US)
  Receive Date: 20161013
  Receipt Date: 20161013
  Transmission Date: 20170207
  Serious: No
  Sender: FDA-Public Use
  Company Number: US-JAZZ-2016-US-013472

PATIENT
  Age: 47 Year
  Sex: Female

DRUGS (30)
  1. XYREM [Suspect]
     Active Substance: SODIUM OXYBATE
     Dosage: 3 G, BID
     Route: 048
     Dates: start: 2015, end: 2015
  2. XYREM [Suspect]
     Active Substance: SODIUM OXYBATE
     Dosage: DOSE ADJUSTMENTS
     Route: 048
     Dates: start: 201511, end: 201602
  3. IMITREX [Concomitant]
     Active Substance: SUMATRIPTAN SUCCINATE
  4. XYREM [Suspect]
     Active Substance: SODIUM OXYBATE
     Dosage: 4.5 G, BID
     Route: 048
     Dates: start: 201602
  5. LATUDA [Concomitant]
     Active Substance: LURASIDONE HYDROCHLORIDE
  6. ERGOCALCIFEROL. [Concomitant]
     Active Substance: ERGOCALCIFEROL
  7. CATAPRES [Concomitant]
     Active Substance: CLONIDINE HYDROCHLORIDE
  8. ADDERALL [Concomitant]
     Active Substance: AMPHETAMINE ASPARTATE\AMPHETAMINE SULFATE\DEXTROAMPHETAMINE SACCHARATE\DEXTROAMPHETAMINE SULFATE
  9. MULTIVITAMIN [Concomitant]
     Active Substance: VITAMINS
  10. WELLBUTRIN [Concomitant]
     Active Substance: BUPROPION HYDROCHLORIDE
  11. XIFAXAN [Concomitant]
     Active Substance: RIFAXIMIN
  12. NASONEX [Concomitant]
     Active Substance: MOMETASONE FUROATE
  13. NUVIGIL [Concomitant]
     Active Substance: ARMODAFINIL
  14. PROVIGIL [Concomitant]
     Active Substance: MODAFINIL
  15. NIFEDIPINE. [Concomitant]
     Active Substance: NIFEDIPINE
  16. SYNTHROID [Concomitant]
     Active Substance: LEVOTHYROXINE SODIUM
  17. CALCIUM CARBONATE. [Concomitant]
     Active Substance: CALCIUM CARBONATE
  18. XYREM [Suspect]
     Active Substance: SODIUM OXYBATE
     Indication: NARCOLEPSY
     Dosage: 2.25 G, BID
     Route: 048
     Dates: start: 201404, end: 2014
  19. XYREM [Suspect]
     Active Substance: SODIUM OXYBATE
     Dosage: 3.5 G, BID
     Route: 048
     Dates: start: 201508, end: 201511
  20. TOPAMAX [Concomitant]
     Active Substance: TOPIRAMATE
  21. THIAMINE HCL [Concomitant]
  22. XYREM [Suspect]
     Active Substance: SODIUM OXYBATE
     Dosage: DOSE ADJUSTMENTS
     Route: 048
     Dates: start: 201408, end: 2015
  23. DEXILANT [Concomitant]
     Active Substance: DEXLANSOPRAZOLE
  24. RESTASIS [Concomitant]
     Active Substance: CYCLOSPORINE
  25. POTASSIUM CL [Concomitant]
     Active Substance: POTASSIUM CHLORIDE
  26. STRATTERA [Concomitant]
     Active Substance: ATOMOXETINE HYDROCHLORIDE
  27. ATIVAN [Concomitant]
     Active Substance: LORAZEPAM
  28. ABILIFY [Concomitant]
     Active Substance: ARIPIPRAZOLE
  29. FOSAMAX [Concomitant]
     Active Substance: ALENDRONATE SODIUM
  30. VITAMIN B12 [Concomitant]
     Active Substance: CYANOCOBALAMIN

REACTIONS (5)
  - Condition aggravated [Unknown]
  - Therapeutic response unexpected [Unknown]
  - Raynaud^s phenomenon [Not Recovered/Not Resolved]
  - Vitamin D deficiency [Unknown]
  - Pre-existing condition improved [Unknown]

NARRATIVE: CASE EVENT DATE: 201606
